FAERS Safety Report 23070069 (Version 1)
Quarter: 2023Q4

REPORT INFORMATION
  Report Type: Spontaneous
  Country: IT (occurrence: IT)
  Receive Date: 20231016
  Receipt Date: 20231016
  Transmission Date: 20240109
  Serious: Yes (Hospitalization)
  Sender: FDA-Public Use
  Company Number: None

PATIENT
  Age: 62 Year
  Sex: Male

DRUGS (1)
  1. ULTRAVIST [Suspect]
     Active Substance: IOPROMIDE
     Indication: Computerised tomogram
     Dosage: 407 MG, ONCE
     Route: 042
     Dates: start: 20230916, end: 20230916

REACTIONS (3)
  - Nasal congestion [Recovered/Resolved]
  - Lacrimation increased [Recovered/Resolved]
  - Eye oedema [Recovered/Resolved]

NARRATIVE: CASE EVENT DATE: 20230916
